FAERS Safety Report 6744345-9 (Version None)
Quarter: 2010Q2

REPORT INFORMATION
  Report Type: 
  Country: None (occurrence: None)
  Receive Date: 20100527
  Receipt Date: 20100521
  Transmission Date: 20101027
  Serious: Yes (Other)
  Sender: FDA-Public Use
  Company Number: US-BAYER-201021555NA

PATIENT
  Age: 56 Year
  Sex: Female

DRUGS (2)
  1. MAGNEVIST [Suspect]
     Indication: COMPUTERISED TOMOGRAM ABDOMEN
     Dosage: TOTAL DAILY DOSE: 20 ML  UNIT DOSE: 20 ML
     Route: 042
     Dates: start: 20100325, end: 20100325
  2. MAGNEVIST [Suspect]
     Dosage: TOTAL DAILY DOSE: 20 ML
     Route: 042
     Dates: start: 20100426, end: 20100426

REACTIONS (1)
  - HEADACHE [None]
